FAERS Safety Report 16489599 (Version 8)
Quarter: 2020Q2

REPORT INFORMATION
  Report Type: Spontaneous
  Country: US (occurrence: US)
  Receive Date: 20190628
  Receipt Date: 20200423
  Transmission Date: 20200713
  Serious: No
  Sender: FDA-Public Use
  Company Number: US-PFIZER INC-2019179291

PATIENT
  Age: 83 Year
  Sex: Female

DRUGS (3)
  1. LYRICA [Suspect]
     Active Substance: PREGABALIN
     Dosage: 25 MG, 1X/DAY 1 CAPSULE ONCE A DAY
     Route: 048
  2. LYRICA [Suspect]
     Active Substance: PREGABALIN
     Dosage: 25 MG, 2X/DAY
     Route: 048
     Dates: start: 20191210
  3. LYRICA [Suspect]
     Active Substance: PREGABALIN
     Indication: PAIN IN EXTREMITY
     Dosage: 25 MG, 2X/DAY 1 CAPSULE TWO TIMES DAILY
     Route: 048
     Dates: start: 20190416

REACTIONS (3)
  - Intentional product misuse [Unknown]
  - Hypoacusis [Unknown]
  - Fatigue [Unknown]

NARRATIVE: CASE EVENT DATE: 20190416
